FAERS Safety Report 5928754-3 (Version None)
Quarter: 2008Q4

REPORT INFORMATION
  Report Type: 
  Country: None (occurrence: None)
  Receive Date: 20081024
  Receipt Date: 20081017
  Transmission Date: 20090506
  Serious: Yes (Other)
  Sender: FDA-Public Use
  Company Number: CA-RANBAXY-2008US-18775

PATIENT

DRUGS (1)
  1. NITROFURANTOIN MONOHYDRATE/MACROCRYSTALS [Suspect]
     Indication: URINARY TRACT INFECTION
     Dosage: UNK MG
     Route: 065

REACTIONS (10)
  - BRONCHIAL WALL THICKENING [None]
  - COUGH [None]
  - DYSPNOEA EXERTIONAL [None]
  - FIBROSIS [None]
  - OEDEMA PERIPHERAL [None]
  - ORGANISING PNEUMONIA [None]
  - PLEURAL EFFUSION [None]
  - PYREXIA [None]
  - SKIN FISSURES [None]
  - WEIGHT DECREASED [None]
